FAERS Safety Report 20868346 (Version 1)
Quarter: 2022Q2

REPORT INFORMATION
  Report Type: Spontaneous
  Country: IE (occurrence: IE)
  Receive Date: 20220524
  Receipt Date: 20220524
  Transmission Date: 20220721
  Serious: Yes (Life-Threatening, Other)
  Sender: FDA-Public Use
  Company Number: IE-PFIZER INC-202200740613

PATIENT
  Age: 54 Year
  Sex: Female

DRUGS (1)
  1. VIBRAMYCIN [Suspect]
     Active Substance: DOXYCYCLINE
     Dosage: UNK
     Dates: start: 20220401

REACTIONS (19)
  - Anaphylactic shock [Unknown]
  - Respiratory tract oedema [Unknown]
  - Drug reaction with eosinophilia and systemic symptoms [Unknown]
  - Illness [Unknown]
  - Lip swelling [Unknown]
  - Swelling face [Unknown]
  - Gingival swelling [Unknown]
  - Swollen tongue [Unknown]
  - Tonsillar hypertrophy [Unknown]
  - Rash [Unknown]
  - Oropharyngeal discomfort [Unknown]
  - Chest discomfort [Unknown]
  - Dyspnoea [Unknown]
  - Increased tendency to bruise [Unknown]
  - Contusion [Unknown]
  - Rash pruritic [Unknown]
  - Heart rate increased [Unknown]
  - Pharyngeal swelling [Unknown]
  - Swelling [Unknown]

NARRATIVE: CASE EVENT DATE: 20220505
